FAERS Safety Report 7276778-9 (Version None)
Quarter: 2011Q1

REPORT INFORMATION
  Report Type: 
  Country: None (occurrence: None)
  Receive Date: 20110207
  Receipt Date: 20101119
  Transmission Date: 20110831
  Serious: Yes (Other)
  Sender: FDA-Public Use
  Company Number: NL-AMGEN-NLDSP2010013435

PATIENT
  Age: 74 Year
  Sex: Female

DRUGS (9)
  1. ENBREL [Suspect]
     Indication: RHEUMATOID ARTHRITIS
     Dosage: 50.0 MG, 1X/WK
     Route: 065
     Dates: start: 20100707, end: 20100727
  2. HYDROCHLOROTHIAZIDE [Concomitant]
     Dosage: 25 MG, QD
  3. PULMICORT [Concomitant]
     Dosage: 2 PUFFS, BID
  4. OXIS                               /00958001/ [Concomitant]
     Dosage: UNK
  5. CALCICHEW-D3 [Concomitant]
     Dosage: 500 MG, QD
  6. OMEPRAZOLE [Concomitant]
  7. ENBREL [Suspect]
     Dosage: 50 MG, 1X/WK
     Route: 065
     Dates: start: 20100819
  8. ATACAND [Concomitant]
     Dosage: 8 MG, QD
  9. OMEPRAZOLE [Concomitant]
     Dosage: 40 MG, 2X/DAY

REACTIONS (3)
  - DYSPEPSIA [None]
  - ABDOMINAL PAIN UPPER [None]
  - GASTRIC INFECTION [None]
